FAERS Safety Report 11988060 (Version 1)
Quarter: 2016Q1

REPORT INFORMATION
  Report Type: Spontaneous
  Country: GB (occurrence: GB)
  Receive Date: 20160202
  Receipt Date: 20160202
  Transmission Date: 20160526
  Serious: Yes (Other)
  Sender: FDA-Public Use
  Company Number: GB-WATSON-2016-00955

PATIENT
  Age: 21 Year
  Sex: Male
  Weight: 83.3 kg

DRUGS (1)
  1. CHLORPHENAMINE (UNKNOWN) [Suspect]
     Active Substance: CHLORPHENIRAMINE MALEATE
     Indication: MULTIPLE ALLERGIES
     Dosage: UNK
     Route: 048

REACTIONS (1)
  - Epistaxis [Recovered/Resolved]
